FAERS Safety Report 8268245-0 (Version None)
Quarter: 2012Q2

REPORT INFORMATION
  Report Type: 
  Country: None (occurrence: None)
  Receive Date: 20120409
  Receipt Date: 20120328
  Transmission Date: 20120825
  Serious: Yes (Hospitalization)
  Sender: FDA-Public Use
  Company Number: ES-ELI_LILLY_AND_COMPANY-ES201203009125

PATIENT
  Sex: Female

DRUGS (2)
  1. FORTEO [Suspect]
     Dosage: UNK
     Dates: start: 20100301, end: 20120301
  2. SINTROM [Concomitant]
     Indication: ANTICOAGULANT THERAPY

REACTIONS (2)
  - CARDIAC DISORDER [None]
  - COAGULOPATHY [None]
